FAERS Safety Report 8164724 (Version 6)
Quarter: 2014Q4

REPORT INFORMATION
  Report Type: Spontaneous
  Country: US (occurrence: US)
  Receive Date: 20110930
  Receipt Date: 20141216
  Transmission Date: 20150529
  Serious: Yes (Life-Threatening, Hospitalization, Other)
  Sender: FDA-Public Use
  Company Number: US-ASTRAZENECA-2011SE57055

PATIENT
  Age: 51 Year
  Sex: Female
  Weight: 84.8 kg

DRUGS (22)
  1. ZESTRIL [Suspect]
     Active Substance: LISINOPRIL
     Indication: BLOOD PRESSURE ABNORMAL
     Route: 048
     Dates: start: 2010
  2. NEXIUM [Suspect]
     Active Substance: ESOMEPRAZOLE MAGNESIUM
     Indication: GASTROOESOPHAGEAL REFLUX DISEASE
     Route: 048
     Dates: start: 201411, end: 20141201
  3. NITROSTATIN [Concomitant]
     Indication: MYOCARDIAL INFARCTION
     Route: 048
  4. NEXIUM [Suspect]
     Active Substance: ESOMEPRAZOLE MAGNESIUM
     Indication: GASTROOESOPHAGEAL REFLUX DISEASE
     Route: 048
     Dates: start: 2004
  5. CRESTOR [Suspect]
     Active Substance: ROSUVASTATIN CALCIUM
     Indication: BLOOD CHOLESTEROL ABNORMAL
     Dosage: CUT THE 40 MG IN HALF AND TAKE IT BID
     Route: 048
     Dates: start: 2010
  6. CARBAMAZEPAM [Concomitant]
     Indication: FACIAL PAIN
     Route: 048
  7. CRESTOR [Suspect]
     Active Substance: ROSUVASTATIN CALCIUM
     Indication: BLOOD CHOLESTEROL ABNORMAL
     Route: 048
     Dates: start: 2010
  8. CARBAMAZEPAM [Concomitant]
     Indication: NEURALGIA
     Route: 048
  9. METOPROLOL TARTRATE. [Concomitant]
     Active Substance: METOPROLOL TARTRATE
     Indication: BLOOD PRESSURE ABNORMAL
     Route: 048
     Dates: start: 2010
  10. METOPROLOL TARTRATE. [Concomitant]
     Active Substance: METOPROLOL TARTRATE
     Indication: CARDIAC DISORDER
     Route: 048
     Dates: start: 2010
  11. POTASSIUM [Concomitant]
     Active Substance: POTASSIUM
     Indication: SUPPLEMENTATION THERAPY
     Route: 048
     Dates: start: 2010
  12. HYDROCODONE [Concomitant]
     Active Substance: HYDROCODONE
     Indication: FACIAL PAIN
     Dosage: AS NEEDED
  13. NEXIUM [Suspect]
     Active Substance: ESOMEPRAZOLE MAGNESIUM
     Indication: GASTROOESOPHAGEAL REFLUX DISEASE
     Route: 048
     Dates: start: 201310
  14. METOPROLOL TARTRATE. [Concomitant]
     Active Substance: METOPROLOL TARTRATE
     Indication: CARDIAC DISORDER
     Route: 048
     Dates: start: 2010
  15. CARBAMAZEPAM [Concomitant]
     Indication: FACIAL PAIN
     Route: 048
     Dates: start: 2006
  16. METOPROLOL TARTRATE. [Concomitant]
     Active Substance: METOPROLOL TARTRATE
     Indication: BLOOD PRESSURE ABNORMAL
     Route: 048
     Dates: start: 2010
  17. ZETIA [Concomitant]
     Active Substance: EZETIMIBE
     Indication: BLOOD CHOLESTEROL ABNORMAL
     Route: 048
     Dates: start: 2011
  18. PRILOSEC [Suspect]
     Active Substance: OMEPRAZOLE MAGNESIUM
     Indication: GASTROOESOPHAGEAL REFLUX DISEASE
     Route: 048
     Dates: start: 1994, end: 2004
  19. LISINOPRIL HCTZ [Suspect]
     Active Substance: HYDROCHLOROTHIAZIDE\LISINOPRIL
     Indication: HYPERTENSION
     Dosage: 20/25 MG, DAILY
     Route: 048
     Dates: start: 201004
  20. CARBAMAZEPAM [Concomitant]
     Indication: NEURALGIA
     Route: 048
     Dates: start: 2006
  21. ASA [Concomitant]
     Active Substance: ASPIRIN
     Indication: CARDIAC DISORDER
     Route: 048
     Dates: start: 201004
  22. VITAMIN B12 [Concomitant]
     Active Substance: CYANOCOBALAMIN
     Indication: TRIGEMINAL NEURALGIA
     Route: 048

REACTIONS (17)
  - Malaise [Unknown]
  - Drug ineffective [Not Recovered/Not Resolved]
  - Myocardial infarction [Recovered/Resolved]
  - Trigeminal neuralgia [Not Recovered/Not Resolved]
  - Off label use [Unknown]
  - Cardiac disorder [Unknown]
  - Facial pain [Unknown]
  - Abdominal pain upper [Unknown]
  - Vomiting [Unknown]
  - Blood cholesterol increased [Unknown]
  - Muscle spasms [Not Recovered/Not Resolved]
  - Gastrooesophageal reflux disease [Unknown]
  - Drug dose omission [Recovered/Resolved]
  - Hypertension [Unknown]
  - Oesophageal spasm [Unknown]
  - Intentional product misuse [Unknown]
  - Dyspepsia [Unknown]

NARRATIVE: CASE EVENT DATE: 2002
